FAERS Safety Report 7811322-6 (Version None)
Quarter: 2011Q4

REPORT INFORMATION
  Report Type: 
  Country: None (occurrence: None)
  Receive Date: 20111011
  Receipt Date: 20110927
  Transmission Date: 20120403
  Serious: Yes (Hospitalization, Other)
  Sender: FDA-Public Use
  Company Number: VAL_00620_2011

PATIENT
  Sex: Female

DRUGS (1)
  1. ROCALTROL [Suspect]
     Indication: PRODUCT USED FOR UNKNOWN INDICATION
     Dosage: (0.25 UG, DAILY DOSE)

REACTIONS (4)
  - FORMICATION [None]
  - NEOPLASM MALIGNANT [None]
  - THYROIDECTOMY [None]
  - PAIN [None]
